FAERS Safety Report 24712427 (Version 2)
Quarter: 2025Q4

REPORT INFORMATION
  Report Type: Spontaneous
  Country: KR (occurrence: KR)
  Receive Date: 20241209
  Receipt Date: 20251124
  Transmission Date: 20260118
  Serious: Yes (Death)
  Sender: ASTELLAS
  Company Number: KR-ASTELLAS-2024-AER-023830

PATIENT
  Age: 46 Year
  Sex: Female

DRUGS (1)
  1. PADCEV [Suspect]
     Active Substance: ENFORTUMAB VEDOTIN-EJFV
     Indication: Renal cancer
     Route: 065
     Dates: start: 20241024

REACTIONS (2)
  - Intestinal obstruction [Fatal]
  - Malignant neoplasm progression [Fatal]
